FAERS Safety Report 14331961 (Version 1)
Quarter: 2017Q4

REPORT INFORMATION
  Report Type: Spontaneous
  Country: US (occurrence: US)
  Receive Date: 20171227
  Receipt Date: 20171227
  Transmission Date: 20180321
  Serious: Yes (Disabling, Other)
  Sender: FDA-Public Use
  Company Number: None

PATIENT
  Age: 79 Year
  Sex: Female
  Weight: 83.25 kg

DRUGS (5)
  1. ESTROGEN PATCH [Concomitant]
     Active Substance: ESTRADIOL
  2. ASPIRIN. [Concomitant]
     Active Substance: ASPIRIN
  3. PROLIA [Suspect]
     Active Substance: DENOSUMAB
     Indication: OSTEOPOROSIS
     Dosage: ?          OTHER FREQUENCY:EVER 6 MOS;?
     Route: 030
     Dates: start: 20170215, end: 20171227
  4. COMPOUNDED THYROID MEDICATION [Concomitant]
  5. LIQUID CALCIUM AND MINERALS [Concomitant]

REACTIONS (5)
  - Bone pain [None]
  - Muscle spasms [None]
  - Back pain [None]
  - Myalgia [None]
  - Middle insomnia [None]

NARRATIVE: CASE EVENT DATE: 20170802
